FAERS Safety Report 4399343-X (Version None)
Quarter: 2004Q3

REPORT INFORMATION
  Report Type: 
  Country: None (occurrence: None)
  Receive Date: 20040716
  Receipt Date: 20030606
  Transmission Date: 20050211
  Serious: Yes (Hospitalization, Other)
  Sender: FDA-Public Use
  Company Number: 200315791GDDC

PATIENT
  Age: 74 Year
  Sex: Male
  Weight: 82.4 kg

DRUGS (24)
  1. CODE UNBROKEN [Suspect]
     Indication: MYOCARDIAL INFARCTION
     Dosage: DOSE: ENOX/PLACEBO BOLUS 30 MG
     Route: 040
     Dates: start: 20030530, end: 20030605
  2. ASPIRIN [Suspect]
     Indication: MYOCARDIAL INFARCTION
     Route: 048
     Dates: start: 20030530
  3. TENECTEPLASE [Suspect]
     Indication: MYOCARDIAL INFARCTION
     Route: 042
     Dates: start: 20030530, end: 20030530
  4. PANTOPRAZOLE [Concomitant]
     Route: 048
     Dates: end: 20030530
  5. ASPIRIN [Concomitant]
     Route: 048
     Dates: start: 20030530, end: 20030531
  6. METOPROLOL [Concomitant]
     Route: 048
     Dates: start: 20030530, end: 20030531
  7. PRAVASTATIN [Concomitant]
     Route: 048
     Dates: end: 20030530
  8. ANGININE [Concomitant]
     Route: 060
     Dates: start: 20030530
  9. MORPHINE [Concomitant]
     Route: 042
     Dates: start: 20030530, end: 20030601
  10. MAXOLON [Concomitant]
     Route: 042
     Dates: start: 20030530, end: 20030531
  11. GTN [Concomitant]
     Route: 061
     Dates: start: 20030530, end: 20030602
  12. LASIX [Concomitant]
     Route: 042
     Dates: start: 20030531, end: 20030605
  13. ONDANSETRON [Concomitant]
     Route: 042
     Dates: start: 20030531, end: 20030531
  14. DIGOXIN [Concomitant]
     Route: 042
     Dates: start: 20030601, end: 20030603
  15. INDOCIN [Concomitant]
     Route: 048
     Dates: start: 20030604, end: 20030606
  16. SPAN-K [Concomitant]
     Route: 048
     Dates: start: 20030601, end: 20030602
  17. CHLORVESCENT [Concomitant]
     Route: 048
     Dates: start: 20030601, end: 20030602
  18. PERINDOPRIL [Concomitant]
     Route: 048
     Dates: start: 20030601, end: 20030606
  19. NYSTATIN [Concomitant]
     Route: 048
     Dates: start: 20030602
  20. AMIODARONE HCL [Concomitant]
     Route: 048
     Dates: start: 20030603, end: 20030604
  21. COLCHICINE [Concomitant]
     Route: 048
     Dates: start: 20030604
  22. ACETAMINOPHEN W/ CODEINE [Concomitant]
     Route: 048
     Dates: start: 20030603
  23. DOPAMINE HCL [Concomitant]
     Dosage: DOSE UNIT: MILLIGRAM PER (KILOGRAM*MINUTE)
     Route: 042
     Dates: start: 20030530, end: 20030601
  24. DOBUTAMINE [Concomitant]
     Dosage: DOSE UNIT: MILLIGRAM PER (KILOGRAM*MINUTE)
     Route: 042
     Dates: start: 20030602, end: 20030603

REACTIONS (12)
  - ASPARTATE AMINOTRANSFERASE INCREASED [None]
  - BLOOD LACTATE DEHYDROGENASE INCREASED [None]
  - CARDIAC FAILURE CONGESTIVE [None]
  - CEREBRAL INFARCTION [None]
  - CONFUSIONAL STATE [None]
  - EMBOLIC STROKE [None]
  - GAMMA-GLUTAMYLTRANSFERASE INCREASED [None]
  - HEMIANOPIA HOMONYMOUS [None]
  - HYPOTENSION [None]
  - HYPOXIA [None]
  - OPTIC ISCHAEMIC NEUROPATHY [None]
  - RENAL FAILURE ACUTE [None]
